FAERS Safety Report 9832828 (Version 2)
Quarter: 2014Q2

REPORT INFORMATION
  Report Type: Spontaneous
  Country: DE (occurrence: DE)
  Receive Date: 20140121
  Receipt Date: 20140417
  Transmission Date: 20141212
  Serious: Yes (Other)
  Sender: FDA-Public Use
  Company Number: DE-GLAXOSMITHKLINE-D0082502A

PATIENT
  Sex: 0

DRUGS (1)
  1. REVOLADE [Suspect]
     Route: 048

REACTIONS (1)
  - Basilar artery thrombosis [Unknown]
